FAERS Safety Report 18608866 (Version 4)
Quarter: 2021Q2

REPORT INFORMATION
  Report Type: Spontaneous
  Country: US (occurrence: US)
  Receive Date: 20201213
  Receipt Date: 20210609
  Transmission Date: 20210717
  Serious: No
  Sender: FDA-Public Use
  Company Number: US-SA-2020SA353614

PATIENT
  Sex: Female

DRUGS (2)
  1. COVID?19 VACCINE NOS. [Suspect]
     Active Substance: COVID-19 VACCINE NOS
     Indication: COVID-19 PROPHYLAXIS
  2. DUPIXENT [Suspect]
     Active Substance: DUPILUMAB
     Indication: ASTHMA
     Dosage: 300 MG, QOW
     Route: 058

REACTIONS (18)
  - Dyspepsia [Unknown]
  - Muscular weakness [Unknown]
  - Arthralgia [Unknown]
  - Adverse event [Unknown]
  - Paraesthesia [Unknown]
  - Pruritus [Not Recovered/Not Resolved]
  - Scratch [Unknown]
  - Urticaria [Not Recovered/Not Resolved]
  - Adverse reaction [Unknown]
  - Product dose omission issue [Unknown]
  - Mobility decreased [Unknown]
  - Dyspnoea [Unknown]
  - Nausea [Unknown]
  - Product use issue [Unknown]
  - Contusion [Unknown]
  - Fall [Unknown]
  - Abdominal pain upper [Unknown]
  - Pain [Unknown]
